FAERS Safety Report 8268755-6 (Version None)
Quarter: 2012Q1

REPORT INFORMATION
  Report Type: 
  Country: None (occurrence: None)
  Receive Date: 20120327
  Receipt Date: 20090519
  Transmission Date: 20120608
  Serious: Yes (Hospitalization)
  Sender: FDA-Public Use
  Company Number: PHEH2009US04579

PATIENT
  Age: 53 Year
  Sex: Female

DRUGS (1)
  1. GLEEVEC [Suspect]
     Indication: CHRONIC MYELOID LEUKAEMIA
     Dosage: 100 MG, QTUE + QTHUR, ORAL, 100 MG QMON, QWED + QFRI, ORAL
     Route: 048
     Dates: start: 20090318

REACTIONS (4)
  - EOSINOPHIL COUNT INCREASED [None]
  - HAEMOGLOBIN DECREASED [None]
  - PACKED RED BLOOD CELL TRANSFUSION [None]
  - BLOOD PRESSURE FLUCTUATION [None]
